FAERS Safety Report 22988489 (Version 3)
Quarter: 2023Q4

REPORT INFORMATION
  Report Type: Report from Study
  Country: NL (occurrence: NL)
  Receive Date: 20230926
  Receipt Date: 20231205
  Transmission Date: 20240109
  Serious: Yes (Other)
  Sender: FDA-Public Use
  Company Number: NL-ABBVIE-4283934

PATIENT
  Age: 70 Year
  Sex: Female

DRUGS (13)
  1. CARBIDOPA\LEVODOPA [Suspect]
     Active Substance: CARBIDOPA\LEVODOPA
     Indication: Parkinson^s disease
     Dosage: MD: 11.0 ML, CD: 3.4 ML/H, ED: 1.5 ML, REMAINS AT 24 HOURS
     Route: 050
     Dates: start: 20230704, end: 20230711
  2. CARBIDOPA\LEVODOPA [Suspect]
     Active Substance: CARBIDOPA\LEVODOPA
     Dosage: CDN 2.7?REMAINS AT 24 HOURS
     Route: 050
     Dates: start: 20221223, end: 20221223
  3. CARBIDOPA\LEVODOPA [Suspect]
     Active Substance: CARBIDOPA\LEVODOPA
     Dosage: REMAINS AT 16 HOURS
     Route: 050
     Dates: start: 20220124
  4. CARBIDOPA\LEVODOPA [Suspect]
     Active Substance: CARBIDOPA\LEVODOPA
     Dosage: MD 12.0 CD 3.6 ED 3.0?REMAINS AT 24 HOURS
     Route: 050
     Dates: start: 20220712, end: 20221121
  5. CARBIDOPA\LEVODOPA [Suspect]
     Active Substance: CARBIDOPA\LEVODOPA
     Dosage: MD 10.0 CD 3.6 ED 3.0 CDN 2.0?REMAINS AT 24 HOURS
     Route: 050
     Dates: start: 20221220, end: 20221220
  6. CARBIDOPA\LEVODOPA [Suspect]
     Active Substance: CARBIDOPA\LEVODOPA
     Dosage: MD: 9.0 ML, CD: 3.6 ML/H, ED: 3.0 ML, CND: 3.0 ML/H, END: 3.0ML
     Route: 050
     Dates: start: 20231101
  7. CARBIDOPA\LEVODOPA [Suspect]
     Active Substance: CARBIDOPA\LEVODOPA
     Dosage: CDN 2.5?REMAINS AT 24 HOURS
     Route: 050
     Dates: start: 20221221, end: 20221221
  8. CARBIDOPA\LEVODOPA [Suspect]
     Active Substance: CARBIDOPA\LEVODOPA
     Dosage: MD: 9.5 ML, CD: 3.6 ML/H, ED: 3.0 ML, CND: 2.9 ML/H, END: 3.0ML REMAINS AT 16 HOURS
     Route: 050
     Dates: start: 20230202, end: 20230704
  9. CARBIDOPA\LEVODOPA [Suspect]
     Active Substance: CARBIDOPA\LEVODOPA
     Dosage: MD: 9.0 ML, CD: 3.6 ML/H, ED: 3.0 ML, CND: 2.9 ML/H, END: 3.0ML
     Route: 050
     Dates: start: 20230711, end: 20231101
  10. BENSERAZIDE HYDROCHLORIDE\LEVODOPA [Concomitant]
     Active Substance: BENSERAZIDE HYDROCHLORIDE\LEVODOPA
     Indication: Parkinson^s disease
     Dosage: FORM STRENGTH: 125 MILLIGRAM, ONCE DAILY TWO (UNITS)
     Route: 048
     Dates: start: 20140111
  11. POLYETHYLENE GLYCOLS [Concomitant]
     Active Substance: POLYETHYLENE GLYCOLS
     Indication: Bowel movement irregularity
  12. PRAMIPEXOLE [Concomitant]
     Active Substance: PRAMIPEXOLE
     Indication: Parkinson^s disease
     Dosage: 0.26 MG
     Route: 048
     Dates: start: 20110101
  13. PRAMIPEXOLE [Concomitant]
     Active Substance: PRAMIPEXOLE
     Indication: Parkinson^s disease
     Dosage: 1.05 MG
     Route: 048
     Dates: start: 20110101

REACTIONS (24)
  - Rehabilitation therapy [Recovered/Resolved]
  - On and off phenomenon [Not Recovered/Not Resolved]
  - Dysstasia [Not Recovered/Not Resolved]
  - Stoma site discharge [Not Recovered/Not Resolved]
  - Parkinson^s disease [Not Recovered/Not Resolved]
  - Loss of personal independence in daily activities [Not Recovered/Not Resolved]
  - Weight decreased [Not Recovered/Not Resolved]
  - Hallucination, visual [Recovered/Resolved]
  - Skin tightness [Not Recovered/Not Resolved]
  - Unevaluable event [Not Recovered/Not Resolved]
  - Stress [Not Recovered/Not Resolved]
  - Feeling abnormal [Not Recovered/Not Resolved]
  - Stoma site reaction [Recovered/Resolved]
  - Device material issue [Not Recovered/Not Resolved]
  - Dyskinesia [Recovering/Resolving]
  - Tension [Not Recovered/Not Resolved]
  - Stoma site erythema [Not Recovered/Not Resolved]
  - Stoma site discharge [Recovered/Resolved]
  - Hyperkinesia [Not Recovered/Not Resolved]
  - Stoma site pain [Not Recovered/Not Resolved]
  - Memory impairment [Not Recovered/Not Resolved]
  - Fibroma [Not Recovered/Not Resolved]
  - Hypophagia [Unknown]
  - Cognitive disorder [Not Recovered/Not Resolved]

NARRATIVE: CASE EVENT DATE: 20230101
